FAERS Safety Report 9828520 (Version 3)
Quarter: 2014Q1

REPORT INFORMATION
  Report Type: Spontaneous
  Country: JP (occurrence: JP)
  Receive Date: 20140117
  Receipt Date: 20140129
  Transmission Date: 20141002
  Serious: Yes (Death, Hospitalization)
  Sender: FDA-Public Use
  Company Number: JP-PFIZER INC-2013277063

PATIENT
  Age: 78 Year
  Sex: Female

DRUGS (6)
  1. SUTENT [Suspect]
     Indication: METASTATIC RENAL CELL CARCINOMA
     Dosage: 25 MG, 1X/DAY
     Route: 048
     Dates: start: 20110126, end: 20110209
  2. SUTENT [Suspect]
     Dosage: 25 MG, 1X/DAY,2-WEEK ADMINISTRATION FOLLOWED BY 4-WEEK INTERRUPTION
     Route: 048
     Dates: start: 20110310
  3. SUTENT [Suspect]
     Dosage: 25 MG, 1X/DAY 1-WEEK ADMINISTRATION AND 4-WEEK INTERRUPTION
     Route: 048
  4. BLOPRESS [Concomitant]
     Indication: HYPERTENSION
     Dosage: 8 MG, 1X/DAY
     Route: 048
  5. AMLODIPINE BESILATE [Concomitant]
     Indication: HYPERTENSION
     Dosage: 5 MG, 1X/DAY
     Route: 048
  6. BENET [Concomitant]
     Indication: DIABETES MELLITUS
     Dosage: 17.5 MG, 1X/DAY
     Route: 048

REACTIONS (7)
  - Disease progression [Fatal]
  - Metastatic renal cell carcinoma [Fatal]
  - Decreased appetite [Recovered/Resolved]
  - Dehydration [Recovering/Resolving]
  - Stomatitis [Recovered/Resolved]
  - Platelet count decreased [Recovered/Resolved]
  - White blood cell count decreased [Recovered/Resolved]
